FAERS Safety Report 24192787 (Version 1)
Quarter: 2024Q3

REPORT INFORMATION
  Report Type: Spontaneous
  Country: PL (occurrence: PL)
  Receive Date: 20240809
  Receipt Date: 20240809
  Transmission Date: 20241016
  Serious: Yes (Hospitalization)
  Sender: AUROBINDO
  Company Number: PL-URPL-1-2349-2020

PATIENT
  Age: 92 Year
  Sex: Female
  Weight: 40 kg

DRUGS (1)
  1. QUETIAPINE [Suspect]
     Active Substance: QUETIAPINE
     Indication: Psychomotor hyperactivity
     Dosage: 25 MILLIGRAM, TWO TIMES A DAY
     Route: 048
     Dates: end: 20200720

REACTIONS (2)
  - Hyporesponsive to stimuli [Recovering/Resolving]
  - Somnolence [Recovering/Resolving]
